FAERS Safety Report 9671522 (Version 2)
Quarter: 2013Q4

REPORT INFORMATION
  Report Type: Spontaneous
  Country: US (occurrence: US)
  Receive Date: 20131106
  Receipt Date: 20131121
  Transmission Date: 20140711
  Serious: No
  Sender: FDA-Public Use
  Company Number: US-PFIZER INC-2013315943

PATIENT
  Age: 58 Year
  Sex: Female
  Weight: 68.03 kg

DRUGS (4)
  1. LYRICA [Suspect]
     Indication: NEURALGIA
     Dosage: 125 MG, 3X/DAY
     Dates: end: 201310
  2. ADVAIR [Concomitant]
     Indication: ASTHMA
     Dosage: FLUTICASONE PROPIONATE 250 MG/SALMETEROL 50 MG, 2X/DAY
  3. COMBIVENT [Concomitant]
     Indication: ASTHMA
     Dosage: UNK, EVERY ONE HOUR
  4. EFFEXOR-XR [Concomitant]
     Indication: ANXIETY
     Dosage: 225 MG, 1X/DAY

REACTIONS (4)
  - Off label use [Unknown]
  - Headache [Not Recovered/Not Resolved]
  - Dizziness [Not Recovered/Not Resolved]
  - Migraine [Unknown]
